FAERS Safety Report 20897397 (Version 3)
Quarter: 2022Q4

REPORT INFORMATION
  Report Type: Spontaneous
  Country: CA (occurrence: CA)
  Receive Date: 20220531
  Receipt Date: 20221208
  Transmission Date: 20230113
  Serious: Yes (Other)
  Sender: FDA-Public Use
  Company Number: CA-AMERICAN REGENT INC-2022001511

PATIENT
  Sex: Female

DRUGS (2)
  1. VENOFER [Suspect]
     Active Substance: IRON SUCROSE
     Indication: Anaemia
     Dosage: 300 MG IN 250 ML NS AT 150 ML/HR; STOPPED; THEN RESTARTED AT SLOWER RATE {100 ML/HR
     Route: 042
     Dates: start: 20220512, end: 20220512
  2. VENOFER [Suspect]
     Active Substance: IRON SUCROSE
     Dosage: UNK

REACTIONS (4)
  - Skin lesion [Unknown]
  - Urticaria [Recovered/Resolved]
  - Erythema [Unknown]
  - Product quality issue [None]

NARRATIVE: CASE EVENT DATE: 20220512
